FAERS Safety Report 5139959-6 (Version None)
Quarter: 2006Q4

REPORT INFORMATION
  Report Type: 
  Country: None (occurrence: None)
  Receive Date: 20061031
  Receipt Date: 20060524
  Transmission Date: 20070319
  Serious: Yes (Other)
  Sender: FDA-Public Use
  Company Number: US-BAYER-200612218BCC

PATIENT
  Age: 44 Year
  Sex: Male
  Weight: 107 kg

DRUGS (1)
  1. ALKA SELTZER PLUS EFFERVESCENT COLD + COUGH [Suspect]
     Indication: NASOPHARYNGITIS
     Route: 048

REACTIONS (10)
  - ABASIA [None]
  - ANAPHYLACTIC REACTION [None]
  - COUGH [None]
  - DYSPNOEA [None]
  - HEADACHE [None]
  - HYPERSENSITIVITY [None]
  - OBSTRUCTIVE AIRWAYS DISORDER [None]
  - OCULAR HYPERAEMIA [None]
  - SINUS DISORDER [None]
  - SWELLING FACE [None]
